FAERS Safety Report 14623875 (Version 1)
Quarter: 2018Q1

REPORT INFORMATION
  Report Type: Spontaneous
  Country: US (occurrence: US)
  Receive Date: 20180309
  Receipt Date: 20180309
  Transmission Date: 20180509
  Serious: Yes (Hospitalization)
  Sender: FDA-Public Use
  Company Number: None

PATIENT
  Sex: Female

DRUGS (15)
  1. LEVALBUTEROL. [Concomitant]
     Active Substance: LEVALBUTEROL
  2. ONDANSETRON [Concomitant]
     Active Substance: ONDANSETRON
  3. XOLAIR [Suspect]
     Active Substance: OMALIZUMAB
     Indication: CYSTIC FIBROSIS
     Route: 058
     Dates: start: 20150723
  4. DULERA [Concomitant]
     Active Substance: FORMOTEROL FUMARATE DIHYDRATE\MOMETASONE FUROATE
  5. TOBRAMYCIN. [Concomitant]
     Active Substance: TOBRAMYCIN
  6. SPIRIVA [Concomitant]
     Active Substance: TIOTROPIUM BROMIDE MONOHYDRATE
  7. CLINDAMYCIN. [Concomitant]
     Active Substance: CLINDAMYCIN
  8. ZENPEP [Concomitant]
     Active Substance: PANCRELIPASE AMYLASE\PANCRELIPASE LIPASE\PANCRELIPASE PROTEASE
  9. PROGESTERONE. [Concomitant]
     Active Substance: PROGESTERONE
  10. PAIN + FEVER TAB [Concomitant]
  11. OSELTAMIVIR [Concomitant]
     Active Substance: OSELTAMIVIR
  12. CLOMIPHENE [Concomitant]
     Active Substance: CLOMIPHENE
  13. PREDNISONE. [Concomitant]
     Active Substance: PREDNISONE
  14. APAP/CODEINE [Concomitant]
     Active Substance: ACETAMINOPHEN\CODEINE PHOSPHATE
  15. SOD CHLORIDE [Concomitant]

REACTIONS (2)
  - Hospitalisation [None]
  - Sedation [None]
